FAERS Safety Report 17039881 (Version 4)
Quarter: 2020Q2

REPORT INFORMATION
  Report Type: Spontaneous
  Country: AR (occurrence: AR)
  Receive Date: 20191116
  Receipt Date: 20200402
  Transmission Date: 20200713
  Serious: Yes (Other)
  Sender: FDA-Public Use
  Company Number: AR-AMGEN-ARGSP2019189483

PATIENT
  Age: 71 Year
  Sex: Female

DRUGS (1)
  1. ENBREL [Suspect]
     Active Substance: ETANERCEPT
     Indication: RHEUMATOID ARTHRITIS
     Dosage: 50 MILLIGRAM, WEEKLY
     Route: 065
     Dates: start: 20060601

REACTIONS (7)
  - Road traffic accident [Recovered/Resolved]
  - Femur fracture [Recovering/Resolving]
  - Gait inability [Recovered/Resolved]
  - Upper limb fracture [Recovering/Resolving]
  - Upper limb fracture [Recovered/Resolved]
  - Lower limb fracture [Recovered/Resolved]
  - Hip fracture [Recovering/Resolving]

NARRATIVE: CASE EVENT DATE: 20190905
